FAERS Safety Report 15428412 (Version 2)
Quarter: 2019Q2

REPORT INFORMATION
  Report Type: Spontaneous
  Country: US (occurrence: US)
  Receive Date: 20180926
  Receipt Date: 20190425
  Transmission Date: 20190711
  Serious: Yes (Other)
  Sender: FDA-Public Use
  Company Number: US-TEVA-2018-US-956454

PATIENT
  Age: 77 Year
  Sex: Male
  Weight: 102 kg

DRUGS (10)
  1. XTANDI [Suspect]
     Active Substance: ENZALUTAMIDE
     Indication: PROSTATE CANCER
     Dosage: 160 MILLIGRAM DAILY;
     Route: 048
     Dates: start: 20170414
  2. CRESTOR [Concomitant]
     Active Substance: ROSUVASTATIN CALCIUM
     Dates: start: 20171115
  3. DUTASTERIDE. [Suspect]
     Active Substance: DUTASTERIDE
     Indication: PROSTATE CANCER
     Dosage: .5 MILLIGRAM DAILY;
     Route: 048
     Dates: start: 20170414
  4. AVODART [Concomitant]
     Active Substance: DUTASTERIDE
  5. PLAVIX [Concomitant]
     Active Substance: CLOPIDOGREL BISULFATE
     Dates: start: 20180320
  6. NITROSTAT [Concomitant]
     Active Substance: NITROGLYCERIN
     Dates: start: 20170626
  7. NORVASC [Concomitant]
     Active Substance: AMLODIPINE BESYLATE
     Dates: start: 20171214
  8. PREVACID [Concomitant]
     Active Substance: LANSOPRAZOLE
     Dates: start: 20171115
  9. IMDUR [Concomitant]
     Active Substance: ISOSORBIDE MONONITRATE
     Dates: start: 20171218
  10. FLOMAX [Concomitant]
     Active Substance: TAMSULOSIN HYDROCHLORIDE
     Dates: start: 20170310

REACTIONS (1)
  - Chest pain [Recovered/Resolved]

NARRATIVE: CASE EVENT DATE: 20180521
